FAERS Safety Report 25604985 (Version 1)
Quarter: 2025Q3

REPORT INFORMATION
  Report Type: Spontaneous
  Country: GB (occurrence: GB)
  Receive Date: 20250725
  Receipt Date: 20250725
  Transmission Date: 20251021
  Serious: Yes (Other)
  Sender: TEVA
  Company Number: GB-MHRA-TPP44987042C10068848YC1753101933538

PATIENT
  Age: 28 Year
  Sex: Male
  Weight: 105 kg

DRUGS (6)
  1. PREGABALIN [Suspect]
     Active Substance: PREGABALIN
     Indication: Ill-defined disorder
     Route: 065
     Dates: start: 20250718
  2. FINASTERIDE [Concomitant]
     Active Substance: FINASTERIDE
     Indication: Ill-defined disorder
     Dates: start: 20250708
  3. NITROFURANTOIN [Concomitant]
     Active Substance: NITROFURANTOIN
     Indication: Ill-defined disorder
     Dosage: FEMALE DOSE - FOR 3 DAYS. ...
     Dates: start: 20250721
  4. FLUCLOXACILLIN [Concomitant]
     Active Substance: FLUCLOXACILLIN
     Indication: Ill-defined disorder
     Dates: start: 20250523, end: 20250530
  5. LISDEXAMFETAMINE [Concomitant]
     Active Substance: LISDEXAMFETAMINE
     Indication: Ill-defined disorder
     Dates: start: 20250319
  6. PREGABALIN [Concomitant]
     Active Substance: PREGABALIN
     Indication: Ill-defined disorder
     Route: 048
     Dates: start: 20250708, end: 20250718

REACTIONS (1)
  - Rash erythematous [Recovering/Resolving]

NARRATIVE: CASE EVENT DATE: 20250718
